FAERS Safety Report 4759745-6 (Version None)
Quarter: 2005Q3

REPORT INFORMATION
  Report Type: 
  Country: None (occurrence: None)
  Receive Date: 20050826
  Receipt Date: 20050609
  Transmission Date: 20060218
  Serious: No
  Sender: FDA-Public Use
  Company Number: 214933

PATIENT
  Age: 47 Year
  Sex: Female
  Weight: 97.5 kg

DRUGS (13)
  1. RAPTIVA [Suspect]
     Indication: PSORIASIS
     Dosage: 98 MG, 1/WEEK, SUBCUTANEOUS
     Route: 058
     Dates: start: 20050427
  2. ABILIFY [Concomitant]
  3. FARNATE (TRANYLCYPROMINE SULFATE) [Concomitant]
  4. LITHIUM (LITHIUM NOS) [Concomitant]
  5. CYCLOSPORINE [Concomitant]
  6. METHOTREXATE [Concomitant]
  7. . [Concomitant]
  8. . [Concomitant]
  9. . [Concomitant]
  10. . [Concomitant]
  11. . [Concomitant]
  12. . [Concomitant]
  13. . [Concomitant]

REACTIONS (1)
  - DEPRESSION [None]
